FAERS Safety Report 4928617-6 (Version None)
Quarter: 2006Q1

REPORT INFORMATION
  Report Type: 
  Country: None (occurrence: None)
  Receive Date: 20060301
  Receipt Date: 20060220
  Transmission Date: 20060701
  Serious: Yes (Hospitalization)
  Sender: FDA-Public Use
  Company Number: NO-JNJFOC-20031105308

PATIENT
  Sex: Female

DRUGS (13)
  1. REMICADE [Suspect]
     Route: 042
  2. REMICADE [Suspect]
     Route: 042
  3. REMICADE [Suspect]
     Route: 042
  4. MODIFENAC [Concomitant]
     Route: 048
  5. PREDNISOLONE [Concomitant]
     Route: 048
  6. METHOTREXATE [Concomitant]
     Route: 048
  7. FOLIC ACID [Concomitant]
     Route: 048
  8. ZOPICLONE [Concomitant]
     Route: 048
  9. CALCIGRAN [Concomitant]
     Route: 048
  10. CALCIGRAN [Concomitant]
     Route: 048
  11. CALCIGRAN [Concomitant]
     Route: 048
  12. CALCIGRAN [Concomitant]
     Indication: OSTEOPENIA
     Route: 048
  13. TRAMAGETIC [Concomitant]
     Indication: PAIN
     Route: 048

REACTIONS (10)
  - CULTURE URINE POSITIVE [None]
  - ESCHERICHIA BACTERAEMIA [None]
  - HEADACHE [None]
  - HEART RATE INCREASED [None]
  - NASOPHARYNGITIS [None]
  - PHARYNGOLARYNGEAL PAIN [None]
  - POLLAKIURIA [None]
  - PYREXIA [None]
  - RASH [None]
  - STREPTOCOCCAL BACTERAEMIA [None]
